FAERS Safety Report 15568969 (Version 1)
Quarter: 2018Q4

REPORT INFORMATION
  Report Type: Spontaneous
  Country: US (occurrence: US)
  Receive Date: 20181031
  Receipt Date: 20181031
  Transmission Date: 20190205
  Serious: Yes (Death, Other)
  Sender: FDA-Public Use
  Company Number: US-CIPLA LTD.-2018US22088

PATIENT

DRUGS (1)
  1. GABAPENTIN. [Suspect]
     Active Substance: GABAPENTIN
     Indication: PAIN
     Dosage: UNK, FEW MONTHS
     Route: 065

REACTIONS (3)
  - Completed suicide [Fatal]
  - Mental disorder [Unknown]
  - Personality change [Unknown]

NARRATIVE: CASE EVENT DATE: 20180907
